FAERS Safety Report 20491997 (Version 1)
Quarter: 2022Q1

REPORT INFORMATION
  Report Type: Spontaneous
  Country: US (occurrence: US)
  Receive Date: 20220218
  Receipt Date: 20220218
  Transmission Date: 20220423
  Serious: No
  Sender: FDA-Public Use
  Company Number: US-GE HEALTHCARE-2022CSU000357

PATIENT
  Age: 34 Year
  Sex: Female

DRUGS (4)
  1. OMNIPAQUE [Suspect]
     Active Substance: IOHEXOL
     Indication: Computerised tomogram abdomen
     Dosage: 150 ML, SINGLE
     Route: 042
     Dates: start: 20220114, end: 20220114
  2. OMNIPAQUE [Suspect]
     Active Substance: IOHEXOL
     Indication: Pain
  3. OMNIPAQUE [Suspect]
     Active Substance: IOHEXOL
     Indication: Nausea
  4. OMNIPAQUE [Suspect]
     Active Substance: IOHEXOL
     Indication: Vomiting

REACTIONS (2)
  - Pharyngeal paraesthesia [Recovered/Resolved]
  - Pruritus [Recovered/Resolved]

NARRATIVE: CASE EVENT DATE: 20220114
